FAERS Safety Report 14247485 (Version 1)
Quarter: 2017Q4

REPORT INFORMATION
  Report Type: Spontaneous
  Country: US (occurrence: None)
  Receive Date: 20171201
  Receipt Date: 20171201
  Transmission Date: 20180321
  Serious: Yes (Hospitalization)
  Sender: FDA-Public Use
  Company Number: None

PATIENT
  Age: 94 Year
  Sex: Male
  Weight: 53.43 kg

DRUGS (1)
  1. PRAMIPEXOLE. [Suspect]
     Active Substance: PRAMIPEXOLE
     Indication: PARKINSONISM
     Route: 048
     Dates: start: 20170726, end: 20170825

REACTIONS (4)
  - Confusional state [None]
  - Hallucination [None]
  - Mental status changes [None]
  - Therapy cessation [None]

NARRATIVE: CASE EVENT DATE: 20170825
